FAERS Safety Report 25924048 (Version 1)
Quarter: 2025Q4

REPORT INFORMATION
  Report Type: Spontaneous
  Country: EU (occurrence: EU)
  Receive Date: 20251015
  Receipt Date: 20251015
  Transmission Date: 20260118
  Serious: Yes (Other)
  Sender: NOVARTIS
  Company Number: EU-002147023-NVSC2025PL153974

PATIENT
  Age: 44 Year
  Sex: Female

DRUGS (7)
  1. CYCLOSPORINE [Suspect]
     Active Substance: CYCLOSPORINE
     Indication: Prophylaxis against graft versus host disease
     Dosage: UNK
     Route: 065
  2. CYCLOSPORINE [Suspect]
     Active Substance: CYCLOSPORINE
     Indication: Immunosuppression
     Dosage: UNK, 75MG-0-75MG
     Route: 065
  3. CYCLOSPORINE [Suspect]
     Active Substance: CYCLOSPORINE
     Dosage: UNK, 50 MG- 0- 25MG
     Route: 048
     Dates: end: 20211027
  4. METHYLPREDNISOLONE [Concomitant]
     Active Substance: METHYLPREDNISOLONE
     Indication: Product used for unknown indication
     Dosage: UNK, 8 MG - 4 MG - 0
     Route: 065
  5. BUDESONIDE [Concomitant]
     Active Substance: BUDESONIDE
     Indication: Product used for unknown indication
     Dosage: 9 MG
     Route: 048
  6. METHYLPREDNISOLONE [Concomitant]
     Active Substance: METHYLPREDNISOLONE
     Indication: Product used for unknown indication
     Dosage: UNK, 16 MG- 0- 16MG
     Route: 048
  7. METHYLPREDNISOLONE [Concomitant]
     Active Substance: METHYLPREDNISOLONE
     Dosage: 40 MG
     Route: 042

REACTIONS (33)
  - Acute graft versus host disease in skin [Unknown]
  - Acute graft versus host disease in intestine [Unknown]
  - Steroid diabetes [Unknown]
  - Erythema [Unknown]
  - Pruritus [Unknown]
  - Rash maculo-papular [Unknown]
  - Chronic graft versus host disease [Unknown]
  - Musculoskeletal disorder [Unknown]
  - Genital dryness [Unknown]
  - Vaginal disorder [Unknown]
  - Chronic graft versus host disease in skin [Unknown]
  - Systemic scleroderma [Unknown]
  - Pigmentation disorder [Unknown]
  - Ulcerative hyperkeratosis [Unknown]
  - Secretion discharge [Unknown]
  - Hyperaesthesia [Unknown]
  - Chronic graft versus host disease in lung [Unknown]
  - Exercise tolerance decreased [Unknown]
  - Chronic graft versus host disease oral [Unknown]
  - Dry mouth [Unknown]
  - Odynophagia [Unknown]
  - Chronic graft versus host disease in eye [Unknown]
  - Dry eye [Unknown]
  - Chronic graft versus host disease in intestine [Unknown]
  - Pneumonia [Unknown]
  - IgG deficiency [Unknown]
  - Cataract [Unknown]
  - Hepatic enzyme increased [Unknown]
  - Pyrexia [Unknown]
  - Aphthous ulcer [Unknown]
  - Abdominal pain [Unknown]
  - Viral infection [Unknown]
  - Infection [Unknown]

NARRATIVE: CASE EVENT DATE: 20210601
